FAERS Safety Report 9242030 (Version 2)
Quarter: 2013Q2

REPORT INFORMATION
  Report Type: Report from Study
  Country: CA (occurrence: CA)
  Receive Date: 20130419
  Receipt Date: 20130424
  Transmission Date: 20140414
  Serious: Yes (Hospitalization)
  Sender: FDA-Public Use
  Company Number: CA-TEVA-398260USA

PATIENT
  Age: 80 Year
  Sex: Male
  Weight: 70 kg

DRUGS (13)
  1. TREANDA [Suspect]
     Indication: B-CELL LYMPHOMA
     Dosage: 6.3321 MILLIGRAM DAILY;
     Route: 042
     Dates: start: 20121213
  2. RITUXIMAB [Suspect]
     Indication: B-CELL LYMPHOMA
     Route: 042
     Dates: start: 20121213
  3. ASPIRIN [Concomitant]
     Indication: ANTICOAGULANT THERAPY
     Dates: start: 20121213
  4. ASPIRIN [Concomitant]
     Indication: INFUSION RELATED REACTION
  5. ZOFRAN [Concomitant]
     Dates: start: 20121213
  6. COLACE [Concomitant]
     Indication: CONSTIPATION
     Dates: start: 20121213
  7. COLACE [Concomitant]
     Indication: ANALGESIC DRUG LEVEL
  8. FLOMAX [Concomitant]
     Indication: POLLAKIURIA
     Dates: start: 20130205, end: 20130326
  9. SOLU MEDROL [Concomitant]
     Indication: INFUSION RELATED REACTION
     Dates: start: 20130207
  10. BENADRYL [Concomitant]
     Indication: INFUSION RELATED REACTION
     Dates: start: 20130207
  11. ACETAMINOPHEN [Concomitant]
     Dates: start: 20121213
  12. IMODIUM [Concomitant]
     Indication: DIARRHOEA
     Dates: start: 20130327
  13. TRAZODONE [Concomitant]
     Indication: INSOMNIA
     Dates: start: 20130326

REACTIONS (1)
  - Atrial fibrillation [Recovered/Resolved]
